FAERS Safety Report 16171303 (Version 1)
Quarter: 2019Q2

REPORT INFORMATION
  Report Type: Spontaneous
  Country: US (occurrence: US)
  Receive Date: 20190408
  Receipt Date: 20190408
  Transmission Date: 20190711
  Serious: Yes (Other)
  Sender: FDA-Public Use
  Company Number: US-LEXICON PHARMACEUTICALS, INC-19-1606-00397

PATIENT
  Sex: Female

DRUGS (10)
  1. POTASSIUM [Concomitant]
     Active Substance: POTASSIUM
  2. COENZYME Q10 [Concomitant]
     Active Substance: UBIDECARENONE
  3. VALSARTAN. [Concomitant]
     Active Substance: VALSARTAN
  4. TELOTRISTAT ETHYL [Suspect]
     Active Substance: TELOTRISTAT ETHYL
     Indication: CARCINOID TUMOUR
  5. LASIX [Concomitant]
     Active Substance: FUROSEMIDE
  6. TELOTRISTAT ETHYL [Suspect]
     Active Substance: TELOTRISTAT ETHYL
     Indication: CARCINOID SYNDROME
     Route: 048
     Dates: start: 20180506
  7. HYOSYNE [Concomitant]
     Active Substance: HYOSCYAMINE SULFATE
  8. CREON [Concomitant]
     Active Substance: PANCRELIPASE AMYLASE\PANCRELIPASE LIPASE\PANCRELIPASE PROTEASE
  9. BENZONATATE. [Concomitant]
     Active Substance: BENZONATATE
  10. SOMATULINE [Concomitant]
     Active Substance: LANREOTIDE ACETATE

REACTIONS (3)
  - Malaise [Unknown]
  - Product dose omission [Unknown]
  - Oxygen therapy [Unknown]
